FAERS Safety Report 25416297 (Version 1)
Quarter: 2025Q2

REPORT INFORMATION
  Report Type: Spontaneous
  Country: US (occurrence: US)
  Receive Date: 20250610
  Receipt Date: 20250610
  Transmission Date: 20250716
  Serious: No
  Sender: TOLMAR
  Company Number: US-TOLMAR-TLM-003-00

PATIENT
  Age: 13 Year
  Sex: Female

DRUGS (6)
  1. LEUPROLIDE [Suspect]
     Active Substance: LEUPROLIDE
     Indication: Ovarian cancer
     Route: 030
  2. ELIGARD [Suspect]
     Active Substance: LEUPROLIDE ACETATE
     Indication: Ovarian cancer
  3. FULVESTRANT [Suspect]
     Active Substance: FULVESTRANT
     Indication: Ovarian cancer
     Route: 030
  4. PALBOCICLIB [Suspect]
     Active Substance: PALBOCICLIB
     Indication: Ovarian cancer
     Route: 048
  5. PALBOCICLIB [Suspect]
     Active Substance: PALBOCICLIB
  6. LETROZOLE [Concomitant]
     Active Substance: LETROZOLE
     Indication: Ovarian cancer

REACTIONS (4)
  - Off label use [Unknown]
  - Fatigue [Recovered/Resolved]
  - Nausea [Recovered/Resolved]
  - Alopecia [Recovered/Resolved]
